FAERS Safety Report 16289350 (Version 5)
Quarter: 2020Q4

REPORT INFORMATION
  Report Type: Report from Study
  Country: US (occurrence: US)
  Receive Date: 20190509
  Receipt Date: 20201006
  Transmission Date: 20210113
  Serious: Yes (Hospitalization)
  Sender: FDA-Public Use
  Company Number: US-ROCHE-2311077

PATIENT
  Age: 67 Year
  Sex: Male
  Weight: 115 kg

DRUGS (20)
  1. COBIMETINIB. [Suspect]
     Active Substance: COBIMETINIB
     Route: 048
     Dates: start: 20190109, end: 20190123
  2. NOVOLOG [Concomitant]
     Active Substance: INSULIN ASPART
     Dosage: 100 UNITS/ML INJECTABLE SOLUTION: 20 UNIT(S) INJECTABLE 3 TIMES A DAY (BEFORE MEALS)
  3. COBIMETINIB. [Suspect]
     Active Substance: COBIMETINIB
     Route: 048
     Dates: start: 20190109, end: 20190822
  4. HYDROCHLOROTHIAZIDE;OLMESARTAN [Concomitant]
     Indication: RASH
     Dosage: 0.1% TOPICRASH AL CREAM APPLY TOPICALLY TO AFFECTED AREA 2 TIMES A DAY
  5. TRIAMCINOLONE [Concomitant]
     Active Substance: TRIAMCINOLONE
     Indication: RASH
     Dosage: 0.1% TOPICAL CREAM APPLY TOPICALLY TO AFFECTED AREA 2 TIMES A DAY
  6. CANDESARTAN;HYDROCHLOROTHIAZIDE [Concomitant]
     Active Substance: CANDESARTAN CILEXETIL\HYDROCHLOROTHIAZIDE
     Dosage: 16 MG-12.5 MG ORAL  TAB: 1 TAB(S) ORALLY QD
     Route: 048
  7. COBIMETINIB. [Suspect]
     Active Substance: COBIMETINIB
     Indication: HAEMOPHAGOCYTIC LYMPHOHISTIOCYTOSIS
     Route: 048
     Dates: start: 20190109, end: 20190423
  8. COBIMETINIB. [Suspect]
     Active Substance: COBIMETINIB
     Route: 048
     Dates: start: 20190516
  9. COBIMETINIB. [Suspect]
     Active Substance: COBIMETINIB
     Dosage: 2 TAB QDX21 DAYS ON/7DAYS OFF
     Route: 048
  10. LANTUS [Concomitant]
     Active Substance: INSULIN GLARGINE
     Dosage: 100 UNITS/ML SUBCUTANEOUS SOLUTION 65 UNIT(S) SUBCUTANEOUS ONCE A DAY (AT BEDTIME)
  11. COBIMETINIB. [Suspect]
     Active Substance: COBIMETINIB
     Route: 048
     Dates: start: 20190109, end: 20190626
  12. COBIMETINIB. [Suspect]
     Active Substance: COBIMETINIB
     Route: 048
     Dates: start: 20190109, end: 20190605
  13. HYDROCORTISONE. [Concomitant]
     Active Substance: HYDROCORTISONE
     Indication: RASH
     Dosage: 2.5% TOPICAL CREAM APPLY TOPICALLY TO AFFECTED AREA 2 TIMES A DAY
  14. METOPROLOL TARTRATE. [Concomitant]
     Active Substance: METOPROLOL TARTRATE
     Dosage: 20 MG-12.5 MG ORAL TABLET 1 TAB(S) ORALLY ONCE A DAY
     Route: 048
  15. FENOFIBRATE. [Concomitant]
     Active Substance: FENOFIBRATE
     Dosage: 160 MG ORAL TABLET 1 TAB(S) ORALLY ONCE A DAY
     Route: 048
  16. LOSARTAN AND HYDROCHLOROTHIAZIDE [Concomitant]
     Active Substance: HYDROCHLOROTHIAZIDE\LOSARTAN POTASSIUM
     Dosage: 50MG-12.5MG ORAL  TAB: 1 TAB(S) ORALLY QD
     Route: 048
  17. COBIMETINIB. [Suspect]
     Active Substance: COBIMETINIB
     Route: 048
     Dates: start: 20190109, end: 20190730
  18. CLOBETASOL [Concomitant]
     Active Substance: CLOBETASOL
     Dosage: 0.05% TOPICAL SOLUTION APPLY TOPICALLY TO AFFECTED AREA ONCE A DAY
  19. COBIMETINIB. [Suspect]
     Active Substance: COBIMETINIB
     Route: 048
     Dates: start: 20190109, end: 20190912
  20. METFORMIN [Concomitant]
     Active Substance: METFORMIN HYDROCHLORIDE
     Dosage: 500 MG ORAL TABLET, EXTENDED RELEASE 2 TAB(S) ORALLY ONCE A DAY
     Route: 048

REACTIONS (2)
  - Blood creatine phosphokinase increased [Recovered/Resolved]
  - Acute kidney injury [Recovering/Resolving]

NARRATIVE: CASE EVENT DATE: 20190131
